FAERS Safety Report 6346923-8 (Version None)
Quarter: 2009Q3

REPORT INFORMATION
  Report Type: 
  Country: None (occurrence: None)
  Receive Date: 20090910
  Receipt Date: 20090901
  Transmission Date: 20100115
  Serious: Yes (Hospitalization)
  Sender: FDA-Public Use
  Company Number: GB-ALLERGAN-0909485US

PATIENT
  Age: 47 Year
  Sex: Female
  Weight: 126.98 kg

DRUGS (8)
  1. BOTULINUM TOXIN TYPE A [Suspect]
     Indication: HYPERTONIC BLADDER
     Dosage: 200 UNITS, SINGLE
     Route: 030
     Dates: start: 20090422, end: 20090422
  2. BLINDED PLACEBO [Suspect]
     Indication: HYPERTONIC BLADDER
     Dosage: 200 UNITS, SINGLE
     Route: 030
     Dates: start: 20090422, end: 20090422
  3. BOTULINUM TOXIN TYPE A [Suspect]
     Dosage: 1 UNK, SINGLE
     Route: 030
     Dates: start: 20070302, end: 20070302
  4. BLINDED PLACEBO [Suspect]
     Dosage: 1 UNK, SINGLE
     Route: 030
     Dates: start: 20070302, end: 20070302
  5. BOTULINUM TOXIN TYPE A [Suspect]
     Dosage: 2 UNK, SINGLE
     Route: 030
     Dates: start: 20070918, end: 20070918
  6. BLINDED PLACEBO [Suspect]
     Dosage: 2 UNK, SINGLE
     Route: 030
     Dates: start: 20070918, end: 20070918
  7. ATENOLOL [Concomitant]
     Indication: HYPERTENSION
     Dosage: 25 MG, QD
     Route: 048
  8. FUROSEMIDE [Concomitant]
     Dosage: 20 MG, QD
     Route: 048

REACTIONS (1)
  - ANXIETY [None]
